FAERS Safety Report 15300857 (Version 1)
Quarter: 2018Q3

REPORT INFORMATION
  Report Type: Spontaneous
  Country: US (occurrence: US)
  Receive Date: 20180821
  Receipt Date: 20180821
  Transmission Date: 20181010
  Serious: No
  Sender: FDA-Public Use
  Company Number: PHEH2018US032946

PATIENT

DRUGS (1)
  1. HYDROXYCHLOROQUINE SULFATE. [Suspect]
     Active Substance: HYDROXYCHLOROQUINE SULFATE
     Indication: PRODUCT USED FOR UNKNOWN INDICATION
     Dosage: 200 MG, UNK
     Route: 048

REACTIONS (5)
  - Urticaria [Unknown]
  - Erythema [Unknown]
  - Pruritus [Unknown]
  - Petechiae [Unknown]
  - Rash [Unknown]
